FAERS Safety Report 11648593 (Version 2)
Quarter: 2015Q4

REPORT INFORMATION
  Report Type: Report from Study
  Country: JP (occurrence: JP)
  Receive Date: 20151021
  Receipt Date: 20151026
  Transmission Date: 20160304
  Serious: Yes (Other)
  Sender: FDA-Public Use
  Company Number: JP-BAUSCH-BL-2015-024041

PATIENT
  Sex: Female

DRUGS (2)
  1. FLUOROURACIL. [Suspect]
     Active Substance: FLUOROURACIL
     Indication: CERVIX CARCINOMA
     Route: 065
  2. CISPLATIN. [Suspect]
     Active Substance: CISPLATIN
     Indication: CERVIX CARCINOMA
     Dosage: 70 MILLIGRAM(S)/SQUARE METER;?INTRAVENOUS INFUSION; 70 MG/M2 IN A 2 HOUR INFUSION GIVEN ON DAY 1
     Route: 042

REACTIONS (2)
  - Gastrointestinal perforation [Unknown]
  - Product use issue [Unknown]
